FAERS Safety Report 17345593 (Version 1)
Quarter: 2020Q1

REPORT INFORMATION
  Report Type: Spontaneous
  Country: CA (occurrence: CA)
  Receive Date: 20200129
  Receipt Date: 20200129
  Transmission Date: 20200409
  Serious: Yes (Hospitalization, Other)
  Sender: FDA-Public Use
  Company Number: CA-TEVA-2020-CA-1176310

PATIENT
  Age: 24 Year
  Sex: Male
  Weight: 52 kg

DRUGS (10)
  1. CANNABIS SATIVA [Concomitant]
     Active Substance: CANNABIS SATIVA FLOWERING TOP
  2. DILTIAZEM. [Concomitant]
     Active Substance: DILTIAZEM
  3. AZATHIOPRINE. [Concomitant]
     Active Substance: AZATHIOPRINE
  4. AZATHIOPRINE. [Concomitant]
     Active Substance: AZATHIOPRINE
     Dosage: 50 MILLIGRAM DAILY;
  5. PREDNISONE. [Concomitant]
     Active Substance: PREDNISONE
     Dosage: 40 MILLIGRAM DAILY;
     Route: 048
  6. PREDNISONE. [Concomitant]
     Active Substance: PREDNISONE
     Route: 048
  7. QUETIAPINE FUMARATE. [Suspect]
     Active Substance: QUETIAPINE FUMARATE
     Indication: PRODUCT USED FOR UNKNOWN INDICATION
     Route: 065
  8. CLONAZEPAM. [Concomitant]
     Active Substance: CLONAZEPAM
  9. SODIUM ALGINATE/SODIUM BICARBONATE [Concomitant]
     Active Substance: SODIUM ALGINATE\SODIUM BICARBONATE
  10. VENLAFAXINE HYDROCHLORIDE. [Suspect]
     Active Substance: VENLAFAXINE HYDROCHLORIDE
     Indication: PRODUCT USED FOR UNKNOWN INDICATION
     Route: 065

REACTIONS (10)
  - Gallbladder polyp [Unknown]
  - Poor quality sleep [Unknown]
  - Chest pain [Unknown]
  - Crohn^s disease [Unknown]
  - Drug withdrawal syndrome [Unknown]
  - Rectal fissure [Unknown]
  - Agitation [Unknown]
  - Cough [Unknown]
  - Anal incontinence [Unknown]
  - Odynophagia [Unknown]
